FAERS Safety Report 21663528 (Version 6)
Quarter: 2022Q4

REPORT INFORMATION
  Report Type: Report from Study
  Country: PL (occurrence: None)
  Receive Date: 20221130
  Receipt Date: 20221227
  Transmission Date: 20230113
  Serious: Yes (Hospitalization)
  Sender: FDA-Public Use
  Company Number: PL-Eisai Medical Research-EC-2022-128477

PATIENT
  Age: 58 Year
  Sex: Male
  Weight: 60.5 kg

DRUGS (9)
  1. LENVATINIB [Suspect]
     Active Substance: LENVATINIB
     Indication: Renal cell carcinoma
     Route: 048
     Dates: start: 20220623, end: 20221109
  2. BELZUTIFAN [Suspect]
     Active Substance: BELZUTIFAN
     Indication: Renal cell carcinoma
     Route: 048
     Dates: start: 20220623, end: 20221109
  3. RAMIPRIL [Concomitant]
     Active Substance: RAMIPRIL
     Dates: start: 201906
  4. BISOPROLOL [Concomitant]
     Active Substance: BISOPROLOL
     Dates: start: 20220630
  5. ATORVASTATIN CALCIUM [Concomitant]
     Active Substance: ATORVASTATIN CALCIUM
     Dates: start: 20220630
  6. MAGNESIUM [Concomitant]
     Active Substance: MAGNESIUM
     Dates: start: 20220721
  7. ASPIRIN [Concomitant]
     Active Substance: ASPIRIN
     Dates: start: 20220630
  8. SODIUM CHLORIDE [Concomitant]
     Active Substance: SODIUM CHLORIDE
     Route: 042
     Dates: start: 20221110, end: 20221110
  9. SACCHAROMYCES CEREVISIAE [Concomitant]
     Active Substance: SACCHAROMYCES CEREVISIAE
     Dates: start: 20221020

REACTIONS (1)
  - Anaemia [Not Recovered/Not Resolved]

NARRATIVE: CASE EVENT DATE: 20221110
